FAERS Safety Report 13018123 (Version 1)
Quarter: 2016Q4

REPORT INFORMATION
  Report Type: Report from Study
  Country: ES (occurrence: ES)
  Receive Date: 20161212
  Receipt Date: 20161212
  Transmission Date: 20170207
  Serious: Yes (Other)
  Sender: FDA-Public Use
  Company Number: ES-CIPLA LTD.-2016ES23332

PATIENT

DRUGS (4)
  1. DARUNAVIR [Suspect]
     Active Substance: DARUNAVIR
     Dosage: 600 MG, BID (TWO DARUNAVIR 300 MG TABLETS) (AFTER THE PRIMARY 24-WEEK EFFICACY ANALYSIS)
     Route: 065
  2. RITONAVIR. [Suspect]
     Active Substance: RITONAVIR
     Indication: HIV INFECTION
     Dosage: 100 MG, BID (AT BASELINE)
     Route: 065
  3. RITONAVIR. [Suspect]
     Active Substance: RITONAVIR
     Dosage: 100 MG, BID (AFTER THE PRIMARY 24-WEEK EFFICACY ANALYSIS)
     Route: 065
  4. DARUNAVIR [Suspect]
     Active Substance: DARUNAVIR
     Indication: HIV INFECTION
     Dosage: 600 MG, BID (AT BASELINE)
     Route: 065

REACTIONS (1)
  - Hip arthroplasty [Unknown]
